FAERS Safety Report 26056811 (Version 1)
Quarter: 2025Q4

REPORT INFORMATION
  Report Type: Spontaneous
  Country: GB (occurrence: GB)
  Receive Date: 20251118
  Receipt Date: 20251118
  Transmission Date: 20260118
  Serious: Yes (Other)
  Sender: AUROBINDO
  Company Number: GB-MHRA-MED-202511070742509230-BVCKN

PATIENT
  Age: 60 Year
  Sex: Male
  Weight: 92 kg

DRUGS (1)
  1. ATORVASTATIN [Suspect]
     Active Substance: ATORVASTATIN
     Indication: Adverse drug reaction
     Dosage: 20 MILLIGRAM, ONCE A DAY
     Route: 065
     Dates: start: 20250729

REACTIONS (1)
  - Tendon discomfort [Recovering/Resolving]

NARRATIVE: CASE EVENT DATE: 20251105
